FAERS Safety Report 21107092 (Version 1)
Quarter: 2022Q3

REPORT INFORMATION
  Report Type: Spontaneous
  Country: US (occurrence: None)
  Receive Date: 20220720
  Receipt Date: 20220720
  Transmission Date: 20221027
  Serious: Yes (Disabling, Other)
  Sender: FDA-Public Use
  Company Number: None

PATIENT
  Age: 57 Year
  Sex: Female
  Weight: 103.5 kg

DRUGS (5)
  1. CITROMA MAGNESIUM CITRATE [Suspect]
     Active Substance: MAGNESIUM CITRATE
     Indication: Laxative supportive care
     Dosage: OTHER QUANTITY : 2 BOTTLES;?FREQUENCY : DAILY;?
     Route: 048
  2. JARDIANCE [Concomitant]
     Active Substance: EMPAGLIFLOZIN
  3. HUMULIN NOS [Concomitant]
     Active Substance: INSULIN HUMAN
  4. liprinisol [Concomitant]
  5. VITAMIN D [Concomitant]
     Active Substance: VITAMIN D NOS

REACTIONS (3)
  - Abdominal pain [None]
  - Abdominal distension [None]
  - Recalled product administered [None]

NARRATIVE: CASE EVENT DATE: 20220108
